FAERS Safety Report 5079949-5 (Version None)
Quarter: 2006Q3

REPORT INFORMATION
  Report Type: 
  Country: None (occurrence: None)
  Receive Date: 20060815
  Receipt Date: 20060807
  Transmission Date: 20061208
  Serious: Yes (Other)
  Sender: FDA-Public Use
  Company Number: US-JNJFOC-20060802160

PATIENT
  Age: 14 Year
  Sex: Female

DRUGS (2)
  1. ACETAMINOPHEN [Suspect]
  2. ACETAMINOPHEN [Suspect]
     Indication: INSOMNIA
     Dosage: ^TWO OR THREE EVERY NIGHT^

REACTIONS (2)
  - DEPENDENCE [None]
  - INCORRECT DOSE ADMINISTERED [None]
